APPROVED DRUG PRODUCT: VITUZ
Active Ingredient: CHLORPHENIRAMINE MALEATE; HYDROCODONE BITARTRATE
Strength: 4MG/5ML;5MG/5ML
Dosage Form/Route: SOLUTION;ORAL
Application: N204307 | Product #001
Applicant: PERSION PHARMACEUTICALS LLC
Approved: Feb 20, 2013 | RLD: Yes | RS: No | Type: DISCN